APPROVED DRUG PRODUCT: TOFRANIL
Active Ingredient: IMIPRAMINE HYDROCHLORIDE
Strength: 50MG
Dosage Form/Route: TABLET;ORAL
Application: A087846 | Product #001
Applicant: SPECGX LLC
Approved: May 22, 1984 | RLD: Yes | RS: No | Type: DISCN